FAERS Safety Report 23324628 (Version 1)
Quarter: 2023Q4

REPORT INFORMATION
  Report Type: Spontaneous
  Country: GB (occurrence: GB)
  Receive Date: 20231221
  Receipt Date: 20231221
  Transmission Date: 20240110
  Serious: Yes (Hospitalization)
  Sender: FDA-Public Use
  Company Number: None

PATIENT
  Age: 35 Year

DRUGS (4)
  1. LAMOTRIGINE [Suspect]
     Active Substance: LAMOTRIGINE
     Dosage: 200MG IN MORNING AND 175MG AT NIGHT
     Route: 065
  2. SYTRON [Concomitant]
     Dosage: TIME INTERVAL: 0.33333333 DAYS
  3. CLOBAZAM [Concomitant]
     Active Substance: CLOBAZAM
  4. FOLIC ACID [Concomitant]
     Active Substance: FOLIC ACID
     Dosage: 2.5MG/5ML

REACTIONS (1)
  - Rash [Recovered/Resolved]
